FAERS Safety Report 23744533 (Version 1)
Quarter: 2024Q2

REPORT INFORMATION
  Report Type: Spontaneous
  Country: CN (occurrence: CN)
  Receive Date: 20240415
  Receipt Date: 20240415
  Transmission Date: 20240716
  Serious: Yes (Hospitalization, Other)
  Sender: FDA-Public Use
  Company Number: CN-009507513-2404CHN006359

PATIENT
  Age: 83 Year
  Sex: Male
  Weight: 68 kg

DRUGS (2)
  1. CILASTATIN SODIUM\IMIPENEM [Suspect]
     Active Substance: CILASTATIN SODIUM\IMIPENEM
     Indication: Pneumonia
     Dosage: 1 GRAM, Q8H
     Route: 041
     Dates: start: 20240322, end: 20240325
  2. DEXTROSE [Concomitant]
     Active Substance: DEXTROSE\DEXTROSE MONOHYDRATE
     Indication: Medication dilution
     Dosage: 100 MILLILITER, Q8H
     Route: 041
     Dates: start: 20240322, end: 20240325

REACTIONS (4)
  - Hepatic function abnormal [Recovering/Resolving]
  - Renal impairment [Recovering/Resolving]
  - Pneumonia [Unknown]
  - Illness [Unknown]

NARRATIVE: CASE EVENT DATE: 20240101
